FAERS Safety Report 7035371-3 (Version None)
Quarter: 2010Q4

REPORT INFORMATION
  Report Type: 
  Country: None (occurrence: None)
  Receive Date: 20101007
  Receipt Date: 20101007
  Transmission Date: 20110411
  Serious: Yes (Disabling)
  Sender: FDA-Public Use
  Company Number: None

PATIENT
  Age: 24 Year
  Sex: Male
  Weight: 111.1313 kg

DRUGS (1)
  1. VYVANSE [Suspect]
     Indication: ATTENTION DEFICIT/HYPERACTIVITY DISORDER
     Dosage: 70MG 1 A DAY PO
     Route: 048
     Dates: start: 20100101, end: 20101005

REACTIONS (5)
  - BLOOD TESTOSTERONE DECREASED [None]
  - SCROTAL VARICOSE VEINS [None]
  - TESTICULAR ATROPHY [None]
  - TESTICULAR PAIN [None]
  - TESTICULAR RETRACTION [None]
